FAERS Safety Report 11803201 (Version 1)
Quarter: 2015Q4

REPORT INFORMATION
  Report Type: Spontaneous
  Country: JP (occurrence: JP)
  Receive Date: 20151204
  Receipt Date: 20151204
  Transmission Date: 20160305
  Serious: Yes (Other)
  Sender: FDA-Public Use
  Company Number: GXJP2015JP001235

PATIENT
  Age: 93 Year
  Sex: Female

DRUGS (1)
  1. DONEPEZIL HYDROCHLORIDE ODT [Suspect]
     Active Substance: DONEPEZIL HYDROCHLORIDE
     Indication: DEMENTIA
     Dosage: UNK
     Route: 048
     Dates: start: 201506

REACTIONS (2)
  - Myoglobin blood increased [Unknown]
  - Blood creatine phosphokinase increased [Unknown]
